FAERS Safety Report 16628861 (Version 1)
Quarter: 2019Q3

REPORT INFORMATION
  Report Type: Spontaneous
  Country: US (occurrence: US)
  Receive Date: 20190725
  Receipt Date: 20190725
  Transmission Date: 20191004
  Serious: No
  Sender: FDA-Public Use
  Company Number: US-JNJFOC-20190722797

PATIENT
  Age: 60 Year
  Sex: Female
  Weight: 65.83 kg

DRUGS (1)
  1. ZYRTEC-D [Suspect]
     Active Substance: CETIRIZINE HYDROCHLORIDE\PSEUDOEPHEDRINE HYDROCHLORIDE
     Indication: PRURITUS
     Dosage: 1 TABLET 1X PER DAY LAST DOSE ADMIN: 14-JUL-2019
     Route: 048
     Dates: start: 20190714

REACTIONS (1)
  - Inappropriate schedule of product administration [Unknown]
